FAERS Safety Report 20967604 (Version 1)
Quarter: 2022Q2

REPORT INFORMATION
  Report Type: Spontaneous
  Country: DE (occurrence: DE)
  Receive Date: 20220616
  Receipt Date: 20220616
  Transmission Date: 20220721
  Serious: Yes (Other)
  Sender: FDA-Public Use
  Company Number: DE-PFIZER INC-PV202200000707

PATIENT
  Age: 68 Year
  Sex: Female

DRUGS (1)
  1. VYNDAQEL [Suspect]
     Active Substance: TAFAMIDIS MEGLUMINE
     Indication: Amyloidosis
     Dosage: 1-0-0

REACTIONS (5)
  - Atrial fibrillation [Unknown]
  - Cardiac failure chronic [Unknown]
  - Disease progression [Unknown]
  - Palpitations [Unknown]
  - Dyspnoea [Unknown]
